FAERS Safety Report 23065212 (Version 1)
Quarter: 2023Q4

REPORT INFORMATION
  Report Type: Report from Study
  Country: AU (occurrence: AU)
  Receive Date: 20231013
  Receipt Date: 20231013
  Transmission Date: 20240110
  Serious: Yes (Hospitalization)
  Sender: FDA-Public Use
  Company Number: AU-ABBVIE-5447304

PATIENT
  Age: 80 Year
  Sex: Male

DRUGS (1)
  1. LEUPROLIDE ACETATE [Suspect]
     Active Substance: LEUPROLIDE ACETATE
     Indication: Prostate cancer
     Route: 030
     Dates: start: 20230428

REACTIONS (5)
  - Fall [Not Recovered/Not Resolved]
  - Wrist fracture [Not Recovered/Not Resolved]
  - Contusion [Not Recovered/Not Resolved]
  - Rib fracture [Not Recovered/Not Resolved]
  - Craniofacial fracture [Not Recovered/Not Resolved]

NARRATIVE: CASE EVENT DATE: 20231009
